FAERS Safety Report 6130304-6 (Version None)
Quarter: 2009Q1

REPORT INFORMATION
  Report Type: 
  Country: None (occurrence: None)
  Receive Date: 20090324
  Receipt Date: 20090316
  Transmission Date: 20090719
  Serious: Yes (Other)
  Sender: FDA-Public Use
  Company Number: CN-BAXTER-2009BH004260

PATIENT
  Age: 74 Year
  Sex: Male
  Weight: 56 kg

DRUGS (9)
  1. DIANEAL [Suspect]
     Indication: RENAL FAILURE CHRONIC
     Route: 033
     Dates: start: 20070701, end: 20090201
  2. DIANEAL [Suspect]
     Route: 033
     Dates: start: 20070401, end: 20070601
  3. DIANEAL [Suspect]
     Indication: RENAL FAILURE CHRONIC
     Route: 033
     Dates: start: 20000918
  4. DIANEAL [Suspect]
     Route: 033
     Dates: start: 20000918
  5. DIANEAL [Suspect]
     Route: 033
     Dates: start: 20070401, end: 20070601
  6. PLENDIL [Concomitant]
     Indication: DRUG USE FOR UNKNOWN INDICATION
     Route: 065
  7. VITAMIN D [Concomitant]
     Indication: DRUG USE FOR UNKNOWN INDICATION
     Route: 065
  8. POTASSIUM CHLORIDE [Concomitant]
     Indication: DRUG USE FOR UNKNOWN INDICATION
     Route: 065
  9. VALSARTAN [Concomitant]
     Indication: DRUG USE FOR UNKNOWN INDICATION
     Route: 065

REACTIONS (2)
  - ANAPHYLACTOID REACTION [None]
  - EOSINOPHIL COUNT INCREASED [None]
